FAERS Safety Report 15887240 (Version 3)
Quarter: 2019Q2

REPORT INFORMATION
  Report Type: Spontaneous
  Country: BR (occurrence: BR)
  Receive Date: 20190130
  Receipt Date: 20190501
  Transmission Date: 20190711
  Serious: Yes (Death, Other)
  Sender: FDA-Public Use
  Company Number: BR-SAKK-2019SA022495AA

PATIENT
  Sex: Male
  Weight: 1.01 kg

DRUGS (1)
  1. LANTUS [Suspect]
     Active Substance: INSULIN GLARGINE
     Route: 064

REACTIONS (17)
  - Premature baby death [Fatal]
  - Fallot^s tetralogy [Unknown]
  - Foetal exposure during pregnancy [Unknown]
  - Cardiac disorder [Fatal]
  - Cleft palate [Fatal]
  - Tibial agenesis [Fatal]
  - Multiple congenital abnormalities [Unknown]
  - Congenital anomaly [Fatal]
  - Ear malformation [Fatal]
  - Fibula agenesis [Fatal]
  - Pulmonary malformation [Fatal]
  - Mechanical ventilation complication [Fatal]
  - Hypotonia neonatal [Fatal]
  - Cyanosis [Fatal]
  - Death [Fatal]
  - Micrognathia [Fatal]
  - Respiratory tract malformation [Fatal]

NARRATIVE: CASE EVENT DATE: 20181024
